FAERS Safety Report 9943605 (Version 2)
Quarter: 2014Q1

REPORT INFORMATION
  Report Type: Report from Study
  Country: US (occurrence: US)
  Receive Date: 20140303
  Receipt Date: 20140303
  Transmission Date: 20141002
  Serious: No
  Sender: FDA-Public Use
  Company Number: US-ABBVIE-12P-163-0993785-00

PATIENT
  Age: 86 Year
  Sex: Female

DRUGS (9)
  1. HUMIRA [Suspect]
     Indication: RHEUMATOID ARTHRITIS
     Dates: start: 20120202
  2. METOPROLOL [Concomitant]
     Indication: HYPERTENSION
  3. LISINOPRIL [Concomitant]
     Indication: HYPERTENSION
  4. SIMVASTATIN [Concomitant]
     Indication: BLOOD CHOLESTEROL INCREASED
  5. LEVOTHYROXINE [Concomitant]
     Indication: THYROIDECTOMY
     Dosage: IN AM
  6. TRIAZOLAM [Concomitant]
     Indication: INSOMNIA
     Dosage: AT BEDTIME
  7. VITAMIN D3 [Concomitant]
     Indication: PRODUCT USED FOR UNKNOWN INDICATION
  8. PACERONE [Concomitant]
     Indication: ATRIAL FIBRILLATION
     Dates: start: 201104
  9. ATORVASTATIN [Concomitant]
     Indication: BLOOD CHOLESTEROL INCREASED

REACTIONS (3)
  - Sciatica [Not Recovered/Not Resolved]
  - Rash erythematous [Not Recovered/Not Resolved]
  - Neuralgia [Not Recovered/Not Resolved]
